FAERS Safety Report 16857540 (Version 2)
Quarter: 2019Q4

REPORT INFORMATION
  Report Type: Spontaneous
  Country: US (occurrence: US)
  Receive Date: 20190926
  Receipt Date: 20191002
  Transmission Date: 20200122
  Serious: Yes (Other)
  Sender: FDA-Public Use
  Company Number: US-SA-2019SA265871

PATIENT
  Age: 61 Year
  Sex: Male

DRUGS (12)
  1. KEVZARA [Suspect]
     Active Substance: SARILUMAB
     Dosage: 200 MG, QOW
     Route: 058
     Dates: start: 20190518, end: 2019
  2. KEVZARA [Suspect]
     Active Substance: SARILUMAB
     Dosage: 150 MG, QOW
     Route: 058
     Dates: start: 2019
  3. CALCIUM [Concomitant]
     Active Substance: CALCIUM
  4. PREDNISONE. [Concomitant]
     Active Substance: PREDNISONE
  5. VITAMIN D [VITAMIN D NOS] [Concomitant]
     Active Substance: VITAMIN D NOS
  6. ALENDRONATE [Concomitant]
     Active Substance: ALENDRONATE SODIUM
  7. FOLIC ACID. [Concomitant]
     Active Substance: FOLIC ACID
  8. FISH OIL [Concomitant]
     Active Substance: FISH OIL
  9. METHOCARBAMOL. [Concomitant]
     Active Substance: METHOCARBAMOL
  10. METHOTREXATE. [Concomitant]
     Active Substance: METHOTREXATE
  11. HYDROCODONE POLISTIREX [Concomitant]
     Active Substance: HYDROCODONE POLISTIREX
  12. BUPIVACAINE. [Concomitant]
     Active Substance: BUPIVACAINE

REACTIONS (5)
  - Pain [Unknown]
  - White blood cell disorder [Not Recovered/Not Resolved]
  - Staphylococcal infection [Unknown]
  - Musculoskeletal stiffness [Unknown]
  - Accident [Unknown]
